FAERS Safety Report 5408209-5 (Version None)
Quarter: 2007Q3

REPORT INFORMATION
  Report Type: 
  Country: None (occurrence: None)
  Receive Date: 20070806
  Receipt Date: 20070806
  Transmission Date: 20080115
  Serious: Yes (Hospitalization)
  Sender: FDA-Public Use
  Company Number: None

PATIENT
  Sex: Female
  Weight: 71 kg

DRUGS (3)
  1. CISPLATIN [Suspect]
     Dosage: 80 MG
  2. DOXORUBICIN HYDROCHLORIDE [Suspect]
     Dosage: 75 MG
  3. TAXOL [Suspect]
     Dosage: 260 MG

REACTIONS (5)
  - ABDOMINAL ADHESIONS [None]
  - INFECTED LYMPHOCELE [None]
  - NEUTROPHIL COUNT DECREASED [None]
  - SMALL INTESTINAL OBSTRUCTION [None]
  - WHITE BLOOD CELL COUNT DECREASED [None]
